FAERS Safety Report 6278152-0 (Version None)
Quarter: 2009Q3

REPORT INFORMATION
  Report Type: 
  Country: None (occurrence: None)
  Receive Date: 20090722
  Receipt Date: 20090714
  Transmission Date: 20100115
  Serious: Yes (Other)
  Sender: FDA-Public Use
  Company Number: US-ASTRAZENECA-2009UW19688

PATIENT
  Age: 62 Year
  Sex: Female
  Weight: 127 kg

DRUGS (6)
  1. NEXIUM [Suspect]
     Route: 048
     Dates: start: 20090601
  2. FOSINOPRIL SODIUM [Concomitant]
  3. VERAPAMIL [Concomitant]
  4. DOXAZOSIN MESYLATE [Concomitant]
  5. FUROSEMIDE [Concomitant]
  6. PROPRANOLOL [Concomitant]

REACTIONS (2)
  - GALLBLADDER OPERATION [None]
  - RASH [None]
